FAERS Safety Report 7910273-6 (Version None)
Quarter: 2011Q4

REPORT INFORMATION
  Report Type: 
  Country: None (occurrence: None)
  Receive Date: 20111111
  Receipt Date: 20111110
  Transmission Date: 20120403
  Serious: Yes (Death)
  Sender: FDA-Public Use
  Company Number: EC-ROCHE-1011485

PATIENT
  Sex: Female
  Weight: 49.94 kg

DRUGS (1)
  1. BONIVA [Suspect]
     Indication: OSTEOPOROSIS
     Route: 048
     Dates: start: 20110117

REACTIONS (1)
  - MYOCARDIAL INFARCTION [None]
